FAERS Safety Report 14750099 (Version 1)
Quarter: 2018Q2

REPORT INFORMATION
  Report Type: Report from Study
  Country: US (occurrence: US)
  Receive Date: 20180412
  Receipt Date: 20180412
  Transmission Date: 20180711
  Serious: Yes (Hospitalization)
  Sender: FDA-Public Use
  Company Number: US-ROCHE-2100147

PATIENT
  Age: 37 Year
  Sex: Female
  Weight: 108.96 kg

DRUGS (11)
  1. BENADRYL [Concomitant]
     Active Substance: DIPHENHYDRAMINE HYDROCHLORIDE
     Indication: BODY TEMPERATURE INCREASED
     Dosage: ONGOING: NO
     Route: 042
     Dates: start: 20180316
  2. BENADRYL [Concomitant]
     Active Substance: DIPHENHYDRAMINE HYDROCHLORIDE
     Indication: BLOOD PRESSURE DECREASED
  3. OCREVUS [Suspect]
     Active Substance: OCRELIZUMAB
     Indication: MULTIPLE SCLEROSIS
     Dosage: 1ST HALF DOSE ;ONGOING: UNKNOWN
     Route: 042
     Dates: start: 20180302
  4. TYLENOL [Concomitant]
     Active Substance: ACETAMINOPHEN
     Indication: HYPERTENSION
     Route: 048
  5. PEPCID (UNITED STATES) [Concomitant]
     Indication: HYPERTENSION
     Dosage: ONGOING: NO
     Route: 042
     Dates: start: 20180302
  6. BENADRYL [Concomitant]
     Active Substance: DIPHENHYDRAMINE HYDROCHLORIDE
     Indication: HYPERTENSION
     Dosage: ONGOING: NO
     Route: 042
     Dates: start: 20180302
  7. TYLENOL [Concomitant]
     Active Substance: ACETAMINOPHEN
     Indication: BODY TEMPERATURE INCREASED
     Route: 048
     Dates: start: 20180316
  8. DECADRON [Concomitant]
     Active Substance: DEXAMETHASONE
     Indication: HYPERTENSION
     Dosage: ONGOING: NO
     Route: 042
     Dates: start: 20180302
  9. DECADRON [Concomitant]
     Active Substance: DEXAMETHASONE
     Indication: BODY TEMPERATURE INCREASED
     Dosage: ONGOING: NO
     Route: 042
     Dates: start: 20180316
  10. TYLENOL [Concomitant]
     Active Substance: ACETAMINOPHEN
     Indication: BLOOD PRESSURE DECREASED
  11. PEPCID (UNITED STATES) [Concomitant]
     Indication: PYREXIA

REACTIONS (6)
  - Nausea [Unknown]
  - Sinus tachycardia [Recovered/Resolved]
  - Body temperature increased [Recovered/Resolved]
  - Hypertension [Recovered/Resolved]
  - Muscle spasms [Recovered/Resolved]
  - Hyperhidrosis [Recovered/Resolved]

NARRATIVE: CASE EVENT DATE: 20180302
